FAERS Safety Report 25214399 (Version 1)
Quarter: 2025Q2

REPORT INFORMATION
  Report Type: Spontaneous
  Country: CN (occurrence: CN)
  Receive Date: 20250418
  Receipt Date: 20250418
  Transmission Date: 20250717
  Serious: Yes (Hospitalization)
  Sender: PFIZER
  Company Number: CN-PFIZER INC-PV202500045027

PATIENT
  Age: 39 Year
  Sex: Female
  Weight: 50 kg

DRUGS (1)
  1. PALBOCICLIB [Suspect]
     Active Substance: PALBOCICLIB
     Indication: Breast cancer
     Dosage: 150 MG, 1X/DAY
     Route: 048
     Dates: start: 20250320, end: 20250403

REACTIONS (2)
  - Myelosuppression [Unknown]
  - Off label use [Unknown]

NARRATIVE: CASE EVENT DATE: 20250320
